FAERS Safety Report 4546119-6 (Version None)
Quarter: 2005Q1

REPORT INFORMATION
  Report Type: 
  Country: None (occurrence: None)
  Receive Date: 20050105
  Receipt Date: 20050105
  Transmission Date: 20050727
  Serious: Yes (Hospitalization)
  Sender: FDA-Public Use
  Company Number: None

PATIENT
  Age: 47 Year
  Sex: Female
  Weight: 109.8 kg

DRUGS (1)
  1. ENOXAPARIN SODIUM [Suspect]
     Indication: MESENTERIC VEIN THROMBOSIS
     Dosage: 50MG  BID  SUBCUTANEO
     Route: 058
     Dates: start: 20041003, end: 20041005

REACTIONS (5)
  - INJECTION SITE PAIN [None]
  - NECROSIS [None]
  - URINARY TRACT INFECTION [None]
  - WOUND DEHISCENCE [None]
  - WOUND INFECTION [None]
